FAERS Safety Report 23363149 (Version 3)
Quarter: 2024Q2

REPORT INFORMATION
  Report Type: Report from Study
  Country: FI (occurrence: FI)
  Receive Date: 20240103
  Receipt Date: 20240501
  Transmission Date: 20240716
  Serious: Yes (Hospitalization, Other)
  Sender: FDA-Public Use
  Company Number: FI-KYOWAKIRIN-2024KK000008

PATIENT

DRUGS (3)
  1. CRYSVITA [Suspect]
     Active Substance: BUROSUMAB-TWZA
     Indication: Hereditary hypophosphataemic rickets
     Dosage: UNK
     Route: 065
     Dates: start: 2021
  2. CRYSVITA [Suspect]
     Active Substance: BUROSUMAB-TWZA
     Dosage: UNK, 1X/2 WEEKS
     Route: 058
     Dates: start: 202202
  3. NORDITROPIN [Concomitant]
     Active Substance: SOMATROPIN
     Indication: Blood growth hormone
     Dosage: 1.2 MG, QD
     Route: 058

REACTIONS (12)
  - Staphylococcal sepsis [Recovered/Resolved]
  - Osteomyelitis [Recovered/Resolved]
  - Bone abscess [Recovering/Resolving]
  - Blood phosphorus decreased [Recovering/Resolving]
  - Diarrhoea [Recovering/Resolving]
  - Inadequate aseptic technique in use of product [Recovering/Resolving]
  - Nightmare [Recovered/Resolved]
  - Tremor [Recovered/Resolved]
  - Somnolence [Recovered/Resolved]
  - Fatigue [Recovered/Resolved]
  - Muscle spasms [Recovered/Resolved]
  - Pruritus [Recovered/Resolved]

NARRATIVE: CASE EVENT DATE: 20210201
